FAERS Safety Report 9975700 (Version 1)
Quarter: 2014Q1

REPORT INFORMATION
  Report Type: Report from Study
  Country: US (occurrence: US)
  Receive Date: 20140306
  Receipt Date: 20140306
  Transmission Date: 20141002
  Serious: No
  Sender: FDA-Public Use
  Company Number: US-ABBVIE-13P-163-1160589-00

PATIENT
  Sex: Female

DRUGS (9)
  1. HUMIRA [Suspect]
     Indication: CROHN^S DISEASE
     Dates: start: 20130930, end: 20130930
  2. HUMIRA [Suspect]
     Dates: start: 20131001, end: 20131001
  3. HUMIRA [Suspect]
     Dosage: PER PATIENT
     Dates: start: 20131014, end: 20131014
  4. HUMIRA [Suspect]
  5. PROTONIX [Concomitant]
     Indication: DIARRHOEA
     Dosage: DAILY
  6. ZOFRAN [Concomitant]
     Indication: NAUSEA
  7. BENTYL [Concomitant]
     Indication: ABDOMINAL PAIN
     Dosage: AS NEEDED
  8. LORTAB [Concomitant]
     Indication: ABDOMINAL PAIN
     Dosage: 10/500 MG, AS NEEDED
  9. KEPPRA [Concomitant]
     Indication: CONVULSION
     Route: 048

REACTIONS (1)
  - Fatigue [Not Recovered/Not Resolved]
